FAERS Safety Report 15089881 (Version 2)
Quarter: 2018Q4

REPORT INFORMATION
  Report Type: Spontaneous
  Country: US (occurrence: US)
  Receive Date: 20180629
  Receipt Date: 20181128
  Transmission Date: 20190204
  Serious: Yes (Hospitalization, Other)
  Sender: FDA-Public Use
  Company Number: US-ASTRAZENECA-2018SE83918

PATIENT
  Age: 26832 Day
  Sex: Female
  Weight: 81.6 kg

DRUGS (42)
  1. NEXIUM 24HR [Suspect]
     Active Substance: ESOMEPRAZOLE MAGNESIUM
     Indication: DYSPEPSIA
     Route: 048
     Dates: start: 2014, end: 2016
  2. NEXIUM 24HR [Suspect]
     Active Substance: ESOMEPRAZOLE MAGNESIUM
     Indication: PAIN
     Route: 048
     Dates: start: 2014, end: 2016
  3. COLCHICINE. [Concomitant]
     Active Substance: COLCHICINE
     Indication: JOINT SWELLING
     Dates: start: 20160621
  4. VOLTAREN [Concomitant]
     Active Substance: DICLOFENAC SODIUM
     Indication: ARTHRITIS
     Dates: start: 20160621
  5. HYDROCORTISONE. [Concomitant]
     Active Substance: HYDROCORTISONE
     Dates: start: 20170605, end: 20180605
  6. GELNIQUE [Concomitant]
     Active Substance: OXYBUTYNIN
     Dates: start: 20100916, end: 20120920
  7. ACETAMINOPHEN. [Concomitant]
     Active Substance: ACETAMINOPHEN
     Indication: PAIN
     Dates: start: 20160126
  8. CALCIUM ACETATE. [Concomitant]
     Active Substance: CALCIUM ACETATE
     Dates: start: 20160130, end: 20180319
  9. COUMADIN [Concomitant]
     Active Substance: WARFARIN SODIUM
     Indication: BLOOD DISORDER
     Dates: start: 20090713
  10. XARELTO [Concomitant]
     Active Substance: RIVAROXABAN
     Indication: PULMONARY EMBOLISM
     Dates: start: 20140416, end: 20140804
  11. LEVAQUIN [Concomitant]
     Active Substance: LEVOFLOXACIN
     Indication: BACTERIAL INFECTION
     Dates: start: 20140627, end: 20160426
  12. NEXIUM 24HR [Suspect]
     Active Substance: ESOMEPRAZOLE MAGNESIUM
     Indication: DYSPEPSIA
     Route: 048
     Dates: start: 2003, end: 2016
  13. ELIQUIS [Concomitant]
     Active Substance: APIXABAN
     Indication: ATRIAL FIBRILLATION
     Dates: start: 20140805, end: 20170920
  14. LIDODERM [Concomitant]
     Active Substance: LIDOCAINE
     Indication: PAIN
     Dates: start: 20160703, end: 20161026
  15. NEXIUM 24HR [Suspect]
     Active Substance: ESOMEPRAZOLE MAGNESIUM
     Indication: DYSPEPSIA
     Route: 048
     Dates: start: 2003, end: 2016
  16. IMODIUM [Concomitant]
     Active Substance: LOPERAMIDE HYDROCHLORIDE
     Indication: DIARRHOEA
     Dates: start: 20160703
  17. PRED FORTE [Concomitant]
     Active Substance: PREDNISOLONE ACETATE
     Indication: EYE IRRITATION
     Dates: start: 20140804, end: 20141106
  18. BONIVA [Concomitant]
     Active Substance: IBANDRONATE SODIUM
     Indication: OSTEOPOROSIS
     Dates: start: 20100421, end: 20101020
  19. XIFAXAN [Concomitant]
     Active Substance: RIFAXIMIN
  20. PRILOSEC OTC [Suspect]
     Active Substance: OMEPRAZOLE MAGNESIUM
     Indication: PAIN
     Route: 048
     Dates: start: 2003, end: 2016
  21. VERELAN [Concomitant]
     Active Substance: VERAPAMIL HYDROCHLORIDE
     Indication: HYPERTENSION
     Dates: start: 20100318
  22. DIGOXIN. [Concomitant]
     Active Substance: DIGOXIN
     Indication: ATRIAL FIBRILLATION
     Dates: start: 20110506, end: 20160125
  23. VESICARE [Concomitant]
     Active Substance: SOLIFENACIN SUCCINATE
     Indication: HYPERTONIC BLADDER
     Dates: start: 20121220, end: 20141006
  24. CARVEDILOL. [Concomitant]
     Active Substance: CARVEDILOL
     Indication: HYPERTENSION
     Dates: start: 20090713, end: 20110521
  25. LACTOBACILLUS ACIDOPHILUS [Concomitant]
     Active Substance: LACTOBACILLUS ACIDOPHILUS
     Indication: DIARRHOEA
     Dates: start: 20160330
  26. SOLIFENACIN [Concomitant]
     Active Substance: SOLIFENACIN
  27. NEXIUM 24HR [Suspect]
     Active Substance: ESOMEPRAZOLE MAGNESIUM
     Indication: PAIN
     Route: 048
     Dates: start: 2003, end: 2016
  28. NEXIUM 24HR [Suspect]
     Active Substance: ESOMEPRAZOLE MAGNESIUM
     Indication: DYSPEPSIA
     Route: 048
     Dates: start: 2014, end: 2016
  29. PAXIL [Concomitant]
     Active Substance: PAROXETINE HYDROCHLORIDE
     Indication: ANXIETY
     Dates: start: 20100318
  30. ROCALTROL [Concomitant]
     Active Substance: CALCITRIOL
     Indication: BONE DISORDER
     Dates: start: 20150113, end: 20160622
  31. CIPRO [Concomitant]
     Active Substance: CIPROFLOXACIN HYDROCHLORIDE
     Indication: BACTERIAL INFECTION
     Dates: start: 20110921, end: 20160202
  32. FERROUS SULFATE. [Concomitant]
     Active Substance: FERROUS SULFATE
     Indication: IRON DEFICIENCY
     Dates: start: 20160130, end: 20160325
  33. NORCO [Concomitant]
     Active Substance: ACETAMINOPHEN\HYDROCODONE BITARTRATE
     Indication: PAIN
     Dates: start: 20160411, end: 20160701
  34. MYRBETRIQ [Concomitant]
     Active Substance: MIRABEGRON
     Indication: HYPERTONIC BLADDER
     Dates: start: 20140404
  35. RENAGEL [Concomitant]
     Active Substance: SEVELAMER HYDROCHLORIDE
     Dates: end: 20170505
  36. AMYLASE, LIPASE, PROTEASE [Concomitant]
     Active Substance: AMYLASE\LIPASE\PROTEASE
     Dates: start: 20170925
  37. DIGOXIN. [Concomitant]
     Active Substance: DIGOXIN
     Indication: ATRIAL FIBRILLATION
     Dates: start: 20110506, end: 20160125
  38. LYRICA [Concomitant]
     Active Substance: PREGABALIN
  39. PRILOSEC OTC [Suspect]
     Active Substance: OMEPRAZOLE MAGNESIUM
     Indication: DYSPEPSIA
     Route: 048
     Dates: start: 2003, end: 2016
  40. PRILOSEC OTC [Suspect]
     Active Substance: OMEPRAZOLE MAGNESIUM
     Indication: DYSPEPSIA
     Route: 048
     Dates: start: 2003, end: 2016
  41. ANTIVERT [Concomitant]
     Active Substance: MECLIZINE HYDROCHLORIDE
     Dates: start: 20110506, end: 20180507
  42. SODIUM BICARBONATE. [Concomitant]
     Active Substance: SODIUM BICARBONATE
     Indication: DYSPEPSIA
     Dates: start: 20140805, end: 20160701

REACTIONS (9)
  - Chronic kidney disease [Not Recovered/Not Resolved]
  - Renal failure [Not Recovered/Not Resolved]
  - End stage renal disease [Unknown]
  - Hyperparathyroidism secondary [Unknown]
  - Renal impairment [Unknown]
  - Tubulointerstitial nephritis [Not Recovered/Not Resolved]
  - Renal injury [Unknown]
  - Acute kidney injury [Unknown]
  - Nephrogenic anaemia [Unknown]

NARRATIVE: CASE EVENT DATE: 20130722
